FAERS Safety Report 4367461-8 (Version None)
Quarter: 2004Q2

REPORT INFORMATION
  Report Type: 
  Country: None (occurrence: None)
  Receive Date: 20040528
  Receipt Date: 20040219
  Transmission Date: 20050107
  Serious: Yes (Hospitalization)
  Sender: FDA-Public Use
  Company Number: CIP04000330

PATIENT
  Sex: Female

DRUGS (2)
  1. ACTONEL [Suspect]
     Indication: OSTEOPOROSIS
     Dosage: 35 MG ONCE WEEKLY, ORAL
     Route: 048
     Dates: start: 20030101, end: 20040101
  2. ACTONEL [Suspect]
     Indication: OSTEOPOROSIS
     Dosage: 30 MG ONCE WEEKLY, ORAL
     Route: 048
     Dates: start: 20020101, end: 20030101

REACTIONS (4)
  - ABDOMINAL PAIN UPPER [None]
  - CHEST PAIN [None]
  - DYSPEPSIA [None]
  - PAIN [None]
